FAERS Safety Report 4304296-6 (Version None)
Quarter: 2004Q1

REPORT INFORMATION
  Report Type: 
  Country: None (occurrence: None)
  Receive Date: 20040225
  Receipt Date: 20040211
  Transmission Date: 20041129
  Serious: Yes (Hospitalization)
  Sender: FDA-Public Use
  Company Number: PERI00204000356

PATIENT
  Age: 79 Year
  Sex: Male
  Weight: 79.3795 kg

DRUGS (6)
  1. ACEON [Suspect]
     Indication: HYPERTENSION
     Dosage: SEE IMAGE
     Route: 048
     Dates: end: 20040127
  2. ACEON [Suspect]
     Indication: HYPERTENSION
     Dosage: SEE IMAGE
     Route: 048
     Dates: start: 20020101
  3. ACEON [Suspect]
     Indication: HYPERTENSION
     Dosage: SEE IMAGE
     Route: 048
     Dates: start: 20040128
  4. COREG [Concomitant]
  5. TYLENOL [Concomitant]
  6. IMDUR (ISOSORBIDE ONONITRATE) [Concomitant]

REACTIONS (1)
  - DIVERTICULITIS [None]
